FAERS Safety Report 17584458 (Version 2)
Quarter: 2020Q2

REPORT INFORMATION
  Report Type: Spontaneous
  Country: US (occurrence: US)
  Receive Date: 20200326
  Receipt Date: 20200513
  Transmission Date: 20200713
  Serious: No
  Sender: FDA-Public Use
  Company Number: US-PFIZER INC-2020127313

PATIENT
  Age: 63 Year
  Sex: Male

DRUGS (1)
  1. XELJANZ [Suspect]
     Active Substance: TOFACITINIB CITRATE
     Indication: POLYMYALGIA RHEUMATICA
     Dosage: UNK

REACTIONS (11)
  - Therapeutic response unexpected [Unknown]
  - Off label use [Unknown]
  - Insomnia [Unknown]
  - Malaise [Unknown]
  - Sensitivity to weather change [Unknown]
  - Cough [Unknown]
  - Pruritus [Unknown]
  - Gastrooesophageal reflux disease [Unknown]
  - Product use in unapproved indication [Unknown]
  - Fatigue [Unknown]
  - Oropharyngeal discomfort [Unknown]
